FAERS Safety Report 10463524 (Version 1)
Quarter: 2014Q3

REPORT INFORMATION
  Report Type: Spontaneous
  Country: US (occurrence: None)
  Receive Date: 20140918
  Receipt Date: 20140918
  Transmission Date: 20150326
  Serious: Yes (Other)
  Sender: FDA-Public Use
  Company Number: None

PATIENT
  Age: 59 Year
  Sex: Female
  Weight: 72.12 kg

DRUGS (2)
  1. GABAPENTIN 300 MG [Suspect]
     Active Substance: GABAPENTIN
     Indication: CONVULSION
     Dosage: 2 PILLS, ONCE DAILY, TAKEN BY MOUTH
     Route: 048
     Dates: start: 20140403, end: 20140917
  2. GABAPENTIN 300 MG [Suspect]
     Active Substance: GABAPENTIN
     Indication: NEURALGIA
     Dosage: 2 PILLS, ONCE DAILY, TAKEN BY MOUTH
     Route: 048
     Dates: start: 20140403, end: 20140917

REACTIONS (1)
  - Hair growth abnormal [None]

NARRATIVE: CASE EVENT DATE: 20140707
